FAERS Safety Report 20821787 (Version 1)
Quarter: 2022Q2

REPORT INFORMATION
  Report Type: Spontaneous
  Country: DE (occurrence: DE)
  Receive Date: 20220512
  Receipt Date: 20220512
  Transmission Date: 20220721
  Serious: Yes (Other)
  Sender: FDA-Public Use
  Company Number: None

PATIENT
  Age: 47 Year
  Sex: Female
  Weight: 75 kg

DRUGS (1)
  1. CYTOTEC [Suspect]
     Active Substance: MISOPROSTOL
     Indication: Labour induction
     Dosage: UNK
     Route: 048
     Dates: start: 20111209, end: 20111209

REACTIONS (8)
  - Stillbirth [Unknown]
  - Shock [Unknown]
  - Uterine haemorrhage [Unknown]
  - Thrombosis [Unknown]
  - Premature separation of placenta [Unknown]
  - Post-traumatic stress disorder [Recovered/Resolved with Sequelae]
  - Uterine tachysystole [Unknown]
  - Off label use [Unknown]

NARRATIVE: CASE EVENT DATE: 20111209
